FAERS Safety Report 6985828-6 (Version None)
Quarter: 2010Q3

REPORT INFORMATION
  Report Type: 
  Country: None (occurrence: None)
  Receive Date: 20100915
  Receipt Date: 20100908
  Transmission Date: 20110219
  Serious: Yes (Other)
  Sender: FDA-Public Use
  Company Number: FI-BAYER-201039125GPV

PATIENT
  Age: 55 Year
  Sex: Female

DRUGS (1)
  1. ASPIRIN ZIPP [Suspect]
     Indication: HEADACHE
     Dosage: TOTAL DAILY DOSE: 500 MG
     Route: 048
     Dates: start: 20100907, end: 20100907

REACTIONS (2)
  - DRY THROAT [None]
  - PHARYNGEAL OEDEMA [None]
